FAERS Safety Report 9520882 (Version 1)
Quarter: 2013Q1

REPORT INFORMATION
  Report Type: Spontaneous
  Country: US (occurrence: None)
  Receive Date: 20130305
  Receipt Date: 20130305
  Transmission Date: 20140127
  Serious: Yes (Other)
  Sender: FDA-Public Use
  Company Number: 163-21880-11091653

PATIENT
  Age: 82 Year
  Sex: Female
  Weight: 48.54 kg

DRUGS (14)
  1. REVLIMID [Suspect]
     Indication: PLASMA CELL MYELOMA
     Dosage: 5 MG, 1 IN 1 D, PO
     Route: 048
     Dates: start: 201005
  2. CARVEDILOL (CARVEDILOL) (UNKNOWN) [Concomitant]
  3. PRILOSEC (OMEPRAZOLE) (UNKNOWN) [Concomitant]
  4. ZENPEP (PANCRELIPASE) (UNKNOWN) [Concomitant]
  5. DIGOXIN (DIGOXIN) (UNKNOWN) (DIGOXIN) [Concomitant]
  6. ZETIA (EZETIMIBE) (UNKNOWN) [Concomitant]
  7. WELCHOL (COLESEVELAM HYDROCHLORIDE) (UNKNOWN) [Concomitant]
  8. CRESTOR (ROSUVASTATIN) (UNKNOWN) [Concomitant]
  9. DEXAMETHASONE (DEXAMETHASONE) (UNKNOWN) [Concomitant]
  10. KLOR-CON (PATASSIUM CHLORIDE) (UNKNOWN) [Concomitant]
  11. TORSEMIDE (TORASEMIDE) (UNKNOWN) [Concomitant]
  12. AMIODARONE (AMIODARONE) (UNKNOWN) [Concomitant]
  13. WARFARIN (WARFARIN) (UNKNOWN) [Concomitant]
  14. ATORVASTATIN (ATORVASTATIN) (UNKNOWN) [Concomitant]

REACTIONS (10)
  - Ageusia [None]
  - Aphagia [None]
  - Tongue blistering [None]
  - Hypoacusis [None]
  - Retching [None]
  - Diarrhoea [None]
  - Abdominal discomfort [None]
  - Fatigue [None]
  - Constipation [None]
  - Decreased appetite [None]
